FAERS Safety Report 6710703-1 (Version None)
Quarter: 2010Q2

REPORT INFORMATION
  Report Type: 
  Country: None (occurrence: None)
  Receive Date: 20100504
  Receipt Date: 20100504
  Transmission Date: 20101027
  Serious: No
  Sender: FDA-Public Use
  Company Number: None

PATIENT
  Age: 9 Month
  Sex: Female
  Weight: 9.0719 kg

DRUGS (2)
  1. TYLENOL (CAPLET) [Suspect]
     Indication: NASOPHARYNGITIS
     Dosage: 0.8ML 4 - 6 HOURS PO
     Route: 048
     Dates: start: 20100501, end: 20100501
  2. TYLENOL (CAPLET) [Suspect]
     Indication: PYREXIA
     Dosage: 0.8ML 4 - 6 HOURS PO
     Route: 048
     Dates: start: 20100501, end: 20100501

REACTIONS (2)
  - NO REACTION ON PREVIOUS EXPOSURE TO DRUG [None]
  - VOMITING PROJECTILE [None]
